FAERS Safety Report 21390997 (Version 1)
Quarter: 2022Q3

REPORT INFORMATION
  Report Type: Report from Study
  Country: US (occurrence: US)
  Receive Date: 20220929
  Receipt Date: 20220929
  Transmission Date: 20221027
  Serious: Yes (Hospitalization)
  Sender: FDA-Public Use
  Company Number: US-NOVARTISPH-NVSC2022US218930

PATIENT
  Sex: Male

DRUGS (1)
  1. ENTRESTO [Suspect]
     Active Substance: SACUBITRIL\VALSARTAN
     Indication: Product used for unknown indication
     Dosage: UNK UNK, BID
     Route: 048
     Dates: start: 2019

REACTIONS (3)
  - Graft infection [Recovering/Resolving]
  - Aortic aneurysm [Recovering/Resolving]
  - Hypotension [Unknown]

NARRATIVE: CASE EVENT DATE: 20190101
